FAERS Safety Report 15567420 (Version 1)
Quarter: 2018Q4

REPORT INFORMATION
  Report Type: Spontaneous
  Country: GB (occurrence: GB)
  Receive Date: 20181030
  Receipt Date: 20181030
  Transmission Date: 20190205
  Serious: Yes (Hospitalization, Other)
  Sender: FDA-Public Use
  Company Number: GB-ALVOGEN-2018-ALVOGEN-097673

PATIENT
  Age: 14 Year
  Sex: Male

DRUGS (1)
  1. FLUOXETINE [Suspect]
     Active Substance: FLUOXETINE HYDROCHLORIDE
     Indication: DEPRESSION
     Dosage: 60 TABLETS, 1.2 G

REACTIONS (9)
  - Myalgia [Recovering/Resolving]
  - Confusional state [Unknown]
  - Overdose [Unknown]
  - Malaise [Unknown]
  - Fatigue [Unknown]
  - Rhabdomyolysis [Recovering/Resolving]
  - Serotonin syndrome [Recovering/Resolving]
  - Tonic clonic movements [Unknown]
  - Vomiting [Unknown]
